FAERS Safety Report 4815354-1 (Version None)
Quarter: 2005Q4

REPORT INFORMATION
  Report Type: 
  Country: None (occurrence: None)
  Receive Date: 20051027
  Receipt Date: 20051018
  Transmission Date: 20060501
  Serious: Yes (Other)
  Sender: FDA-Public Use
  Company Number: 163-20785-05090299

PATIENT
  Age: 74 Year
  Sex: Male

DRUGS (3)
  1. THALOMID [Suspect]
     Indication: ANGIODYSPLASIA
     Dosage: 100 MG, DAILY, ORAL
     Route: 048
     Dates: start: 20050729, end: 20050913
  2. THALOMID [Suspect]
     Indication: HAEMORRHAGE
     Dosage: 100 MG, DAILY, ORAL
     Route: 048
     Dates: start: 20050729, end: 20050913
  3. INNOHEP [Suspect]
     Indication: DEEP VEIN THROMBOSIS

REACTIONS (2)
  - DEEP VEIN THROMBOSIS [None]
  - RECTAL HAEMORRHAGE [None]
